FAERS Safety Report 12672210 (Version 1)
Quarter: 2016Q3

REPORT INFORMATION
  Report Type: Spontaneous
  Country: US (occurrence: US)
  Receive Date: 20160822
  Receipt Date: 20160822
  Transmission Date: 20161109
  Serious: Yes (Disabling, Other)
  Sender: FDA-Public Use
  Company Number: ALCN2016US005703

PATIENT
  Age: 54 Year
  Sex: Male

DRUGS (1)
  1. PANTOPAQUE [Suspect]
     Active Substance: IOPHENDYLATE
     Indication: SPINAL MYELOGRAM
     Dosage: ONCE/SINGLE
     Route: 065
     Dates: start: 19751117

REACTIONS (15)
  - Pain in extremity [Unknown]
  - Hypoaesthesia [Unknown]
  - Meningeal disorder [Unknown]
  - Syringomyelia [Unknown]
  - Clumsiness [Unknown]
  - Urinary incontinence [Not Recovered/Not Resolved]
  - Asthenia [Unknown]
  - Anal incontinence [Not Recovered/Not Resolved]
  - Arachnoiditis [Not Recovered/Not Resolved]
  - Fall [Not Recovered/Not Resolved]
  - Gait disturbance [Not Recovered/Not Resolved]
  - Tethered cord syndrome [Not Recovered/Not Resolved]
  - Muscular weakness [Not Recovered/Not Resolved]
  - Pain [Unknown]
  - Anxiety [Unknown]

NARRATIVE: CASE EVENT DATE: 2009
